FAERS Safety Report 19862221 (Version 1)
Quarter: 2021Q3

REPORT INFORMATION
  Report Type: Report from Study
  Country: None (occurrence: CO)
  Receive Date: 20210920
  Receipt Date: 20210920
  Transmission Date: 20211014
  Serious: Yes (Other)
  Sender: FDA-Public Use
  Company Number: CO-ABBVIE-21K-036-4085344-00

PATIENT
  Age: 37 Year
  Sex: Female
  Weight: 74 kg

DRUGS (1)
  1. HUMIRA [Suspect]
     Active Substance: ADALIMUMAB
     Indication: RHEUMATOID ARTHRITIS
     Route: 058
     Dates: start: 20200111

REACTIONS (8)
  - Injection site haematoma [Recovered/Resolved]
  - Arthralgia [Recovered/Resolved]
  - Inflammation [Recovering/Resolving]
  - Abdominal pain [Recovered/Resolved]
  - Visual impairment [Recovering/Resolving]
  - Pain [Recovered/Resolved]
  - Nodule [Unknown]
  - Vision blurred [Recovering/Resolving]

NARRATIVE: CASE EVENT DATE: 20200111
